FAERS Safety Report 4845577-7 (Version None)
Quarter: 2005Q4

REPORT INFORMATION
  Report Type: 
  Country: None (occurrence: None)
  Receive Date: 20051205
  Receipt Date: 20051006
  Transmission Date: 20060501
  Serious: Yes (Hospitalization, Other)
  Sender: FDA-Public Use
  Company Number: US-MERCK-0510USA06208

PATIENT
  Age: 66 Year
  Sex: Male
  Weight: 106 kg

DRUGS (6)
  1. VIOXX [Suspect]
     Indication: ARTHRALGIA
     Route: 048
     Dates: start: 20010901, end: 20011001
  2. VIOXX [Suspect]
     Route: 048
     Dates: start: 20011001, end: 20050125
  3. COUMADIN [Concomitant]
     Route: 065
  4. MONTELUKAST SODIUM [Concomitant]
     Route: 065
  5. POTASSIUM CHLORIDE [Concomitant]
     Route: 065
  6. TYLENOL [Concomitant]
     Route: 065

REACTIONS (21)
  - AORTIC VALVE INCOMPETENCE [None]
  - ARTHRITIS [None]
  - ATRIAL FIBRILLATION [None]
  - ATRIAL FLUTTER [None]
  - BRADYCARDIA [None]
  - CARDIAC FAILURE CONGESTIVE [None]
  - CHRONIC OBSTRUCTIVE PULMONARY DISEASE [None]
  - CORONARY ARTERY DISEASE [None]
  - DILATATION VENTRICULAR [None]
  - EYE DISORDER [None]
  - HYPERTENSION [None]
  - MITRAL VALVE INCOMPETENCE [None]
  - MYOCARDIAL INFARCTION [None]
  - ORTHOPEDIC EXAMINATION ABNORMAL [None]
  - PROSTATIC DISORDER [None]
  - ROTATOR CUFF SYNDROME [None]
  - SUPRAVENTRICULAR TACHYCARDIA [None]
  - TOOTH DISORDER [None]
  - TRANSIENT ISCHAEMIC ATTACK [None]
  - TRICUSPID VALVE INCOMPETENCE [None]
  - VENTRICULAR EXTRASYSTOLES [None]
